FAERS Safety Report 8620110 (Version 3)
Quarter: 2012Q4

REPORT INFORMATION
  Report Type: 
  Country: JP (occurrence: JP)
  Receive Date: 20120618
  Receipt Date: 20121026
  Transmission Date: 20130627
  Serious: Yes (Hospitalization)
  Sender: FDA-Public Use
  Company Number: JP-GLAXOSMITHKLINE-B0807375A

PATIENT
  Age: 61 None
  Sex: Female
  Weight: 72 kg

DRUGS (19)
  1. LAMICTAL [Suspect]
     Indication: BIPOLAR DISORDER
     Dosage: 25MG Alternate days
     Route: 048
     Dates: start: 20120419, end: 20120502
  2. LAMICTAL [Suspect]
     Indication: BIPOLAR DISORDER
     Dosage: 25MG Per day
     Route: 048
     Dates: start: 20120503, end: 20120516
  3. LAMICTAL [Suspect]
     Indication: BIPOLAR DISORDER
     Dosage: 25MG Twice per day
     Route: 048
     Dates: start: 20120517, end: 20120523
  4. TEGRETOL [Concomitant]
     Indication: BIPOLAR DISORDER
     Dosage: 200MG Twice per day
     Route: 048
     Dates: start: 20111201, end: 20120418
  5. VALPROIC ACID [Concomitant]
     Indication: BIPOLAR DISORDER
     Dosage: 1000MG Twice per day
     Route: 048
  6. LIMAS [Concomitant]
     Indication: BIPOLAR DISORDER
     Dosage: 600MG Twice per day
     Route: 048
  7. AMOBAN [Concomitant]
     Dosage: 7.5MG Per day
     Route: 048
  8. ROHYPNOL [Concomitant]
     Dosage: .5MG Per day
     Route: 048
  9. AKINETON [Concomitant]
     Dosage: 2MG Twice per day
     Route: 048
  10. SEROQUEL [Concomitant]
     Indication: BIPOLAR DISORDER
     Dosage: 700MG Twice per day
     Route: 048
  11. CHINESE MEDICINE [Concomitant]
     Dosage: 2.5G Three times per day
     Route: 048
     Dates: start: 201203
  12. NEUROTROPIN [Concomitant]
     Dosage: 4IU Three times per day
     Route: 048
  13. MARZULENE-S [Concomitant]
     Dosage: .5G Three times per day
     Route: 048
  14. MYONAL [Concomitant]
     Dosage: 50MG Three times per day
     Route: 048
  15. MAGMITT [Concomitant]
     Dosage: 330G Three times per day
     Route: 048
  16. PURSENNID [Concomitant]
     Dosage: 24G Per day
     Route: 048
  17. CABASER [Concomitant]
     Dosage: .5MG Per day
     Route: 048
  18. MIRABEGRON [Concomitant]
     Dosage: 50MG Per day
     Route: 048
  19. URITOS [Concomitant]
     Indication: PRODUCT USED FOR UNKNOWN INDICATION
     Dosage: .2MG per day
     Route: 048

REACTIONS (20)
  - Drug reaction with eosinophilia and systemic symptoms [Recovered/Resolved]
  - Rash [Recovering/Resolving]
  - Hepatic function abnormal [Recovering/Resolving]
  - Renal impairment [Recovering/Resolving]
  - Hypernatraemia [Recovering/Resolving]
  - Pyrexia [Unknown]
  - Dermatitis exfoliative [Unknown]
  - Decreased appetite [Unknown]
  - Aspartate aminotransferase increased [Unknown]
  - Alanine aminotransferase increased [Unknown]
  - Blood lactate dehydrogenase increased [Unknown]
  - Lymphocyte morphology abnormal [Unknown]
  - White blood cell count increased [Unknown]
  - Eosinophil percentage increased [Unknown]
  - Lymphocyte percentage decreased [Unknown]
  - Protein total decreased [Unknown]
  - Blood albumin decreased [Unknown]
  - Erythema [Unknown]
  - Dermatitis contact [Unknown]
  - Eosinophilia [Unknown]
